FAERS Safety Report 16132125 (Version 4)
Quarter: 2020Q3

REPORT INFORMATION
  Report Type: Spontaneous
  Country: AU (occurrence: AU)
  Receive Date: 20190329
  Receipt Date: 20190330
  Transmission Date: 20201105
  Serious: Yes (Hospitalization)
  Sender: FDA-Public Use
  Company Number: AU-ACCORD-115874

PATIENT
  Age: 69 Year
  Sex: Male

DRUGS (11)
  1. DEXAMETHASONE. [Concomitant]
     Active Substance: DEXAMETHASONE
     Dates: start: 20140114
  2. OXALIPLATIN. [Suspect]
     Active Substance: OXALIPLATIN
     Indication: GASTROOESOPHAGEAL CANCER
     Route: 042
     Dates: start: 20140114
  3. ONARTUZUMAB. [Suspect]
     Active Substance: ONARTUZUMAB
     Indication: GASTROOESOPHAGEAL CANCER
  4. LOPERAMIDE [Concomitant]
     Active Substance: LOPERAMIDE
     Dates: start: 20140114
  5. FLUOROURACIL. [Suspect]
     Active Substance: FLUOROURACIL
     Indication: GASTROOESOPHAGEAL CANCER
     Dosage: ALSO RECEIVED 1100 MG IV BOLUS
     Route: 042
     Dates: start: 20140114
  6. COVERSYL [Concomitant]
     Active Substance: PERINDOPRIL
     Dates: start: 2001
  7. AVODART [Concomitant]
     Active Substance: DUTASTERIDE
  8. CRESTOR [Concomitant]
     Active Substance: ROSUVASTATIN CALCIUM
     Dates: start: 2010
  9. CALMURID [Concomitant]
     Dates: start: 2013
  10. FOLINIC ACID [Suspect]
     Active Substance: LEUCOVORIN
     Indication: GASTROOESOPHAGEAL CANCER
     Route: 042
     Dates: start: 20140114
  11. PALONOSETRON/PALONOSETRON HYDROCHLORIDE [Concomitant]
     Dates: start: 20140114, end: 20140114

REACTIONS (2)
  - Chest pain [Recovered/Resolved]
  - Chest discomfort [Recovered/Resolved]

NARRATIVE: CASE EVENT DATE: 20140115
